FAERS Safety Report 4729107-6 (Version None)
Quarter: 2005Q3

REPORT INFORMATION
  Report Type: 
  Country: None (occurrence: None)
  Receive Date: 20050729
  Receipt Date: 20020904
  Transmission Date: 20060218
  Serious: No
  Sender: FDA-Public Use
  Company Number: US-GLAXOSMITHKLINE-A0379912A

PATIENT
  Age: 31 Year
  Sex: Female

DRUGS (7)
  1. IMITREX [Suspect]
     Dosage: 100MG VARIABLE DOSE
     Route: 048
  2. IMITREX [Suspect]
     Indication: MIGRAINE
     Dosage: 6MG VARIABLE DOSE
     Route: 058
  3. VICOPROFEN [Concomitant]
     Indication: MIGRAINE
  4. ESTROGEN [Concomitant]
  5. TRAZODONE HCL [Concomitant]
  6. TYLENOL W/ CODEINE NO. 4 [Concomitant]
  7. ESTRACE [Concomitant]

REACTIONS (2)
  - DRUG INEFFECTIVE [None]
  - SKIN DISORDER [None]
